FAERS Safety Report 9647730 (Version 1)
Quarter: 2013Q4

REPORT INFORMATION
  Report Type: Spontaneous
  Country: US (occurrence: US)
  Receive Date: 20131028
  Receipt Date: 20131028
  Transmission Date: 20140711
  Serious: No
  Sender: FDA-Public Use
  Company Number: US-009507513-1310USA011954

PATIENT
  Sex: 0

DRUGS (1)
  1. CANCIDAS [Suspect]
     Indication: CANDIDA INFECTION
     Dosage: TOTAL DOSE 50MG/D

REACTIONS (1)
  - Drug ineffective [Unknown]
